FAERS Safety Report 8494735-1 (Version None)
Quarter: 2012Q3

REPORT INFORMATION
  Report Type: 
  Country: None (occurrence: None)
  Receive Date: 20120709
  Receipt Date: 20120616
  Transmission Date: 20120928
  Serious: No
  Sender: FDA-Public Use
  Company Number: US-BAYER-2012-060969

PATIENT

DRUGS (1)
  1. ALEVE (CAPLET) [Suspect]
     Indication: BACK PAIN
     Dosage: 2 DF, UNK
     Route: 048

REACTIONS (4)
  - BALANCE DISORDER [None]
  - MUSCULOSKELETAL DISCOMFORT [None]
  - GAIT DISTURBANCE [None]
  - DIZZINESS [None]
